FAERS Safety Report 12433790 (Version 2)
Quarter: 2016Q2

REPORT INFORMATION
  Report Type: Report from Study
  Country: DE (occurrence: DE)
  Receive Date: 20160603
  Receipt Date: 20160622
  Transmission Date: 20160815
  Serious: Yes (Hospitalization)
  Sender: FDA-Public Use
  Company Number: DE-ASTELLAS-2016US021138

PATIENT
  Age: 53 Year
  Sex: Female
  Weight: 40 kg

DRUGS (1)
  1. TACROLIMUS. [Suspect]
     Active Substance: TACROLIMUS
     Indication: IMMUNOSUPPRESSION
     Route: 048
     Dates: start: 20151213, end: 20160520

REACTIONS (1)
  - Complications of transplanted kidney [Not Recovered/Not Resolved]

NARRATIVE: CASE EVENT DATE: 20160520
